FAERS Safety Report 11043648 (Version 4)
Quarter: 2020Q3

REPORT INFORMATION
  Report Type: Report from Study
  Country: GB (occurrence: GB)
  Receive Date: 20150417
  Receipt Date: 20160729
  Transmission Date: 20201105
  Serious: Yes (Hospitalization)
  Sender: FDA-Public Use
  Company Number: GB-JNJFOC-20150319704

PATIENT
  Age: 28 Year
  Sex: Male
  Weight: 104 kg

DRUGS (4)
  1. USTEKINUMAB [Suspect]
     Active Substance: USTEKINUMAB
     Indication: PSORIASIS
     Route: 058
     Dates: start: 20150212, end: 20150312
  2. ARCOXIA [Concomitant]
     Active Substance: ETORICOXIB
     Indication: PSORIATIC ARTHROPATHY
     Dates: start: 20150313
  3. USTEKINUMAB [Suspect]
     Active Substance: USTEKINUMAB
     Route: 058
  4. DICLOFENAC [Concomitant]
     Active Substance: DICLOFENAC
     Indication: PSORIATIC ARTHROPATHY
     Dates: end: 20150313

REACTIONS (1)
  - Blindness [Recovered/Resolved]

NARRATIVE: CASE EVENT DATE: 20150321
